FAERS Safety Report 9874848 (Version 4)
Quarter: 2014Q2

REPORT INFORMATION
  Report Type: Spontaneous
  Country: JP (occurrence: JP)
  Receive Date: 20140206
  Receipt Date: 20140603
  Transmission Date: 20141212
  Serious: Yes (Hospitalization)
  Sender: FDA-Public Use
  Company Number: JP-ROCHE-1341903

PATIENT
  Age: 35 Year
  Sex: Male
  Weight: 79 kg

DRUGS (4)
  1. TAMIFLU [Suspect]
     Indication: INFLUENZA
     Route: 048
     Dates: start: 20131220, end: 20131225
  2. POLARAMINE [Concomitant]
     Indication: INFLUENZA
     Dosage: DOSAGE IS UNCERTAIN.
     Route: 048
     Dates: start: 20131220, end: 20131225
  3. PROCATEROL HYDROCHLORIDE [Concomitant]
     Indication: INFLUENZA
     Dosage: DOSAGE IS UNCERTAIN.?REPORTED AS METHILEFT
     Route: 048
     Dates: start: 20131220, end: 20131225
  4. CALONAL [Concomitant]
     Indication: INFLUENZA
     Route: 048
     Dates: start: 20131220

REACTIONS (6)
  - Leukopenia [Recovered/Resolved]
  - Thrombocytopenia [Recovered/Resolved]
  - Pneumonia [Recovering/Resolving]
  - Pyrexia [Recovered/Resolved]
  - Red blood cell count decreased [Recovered/Resolved]
  - Toothache [Recovered/Resolved]
